FAERS Safety Report 6457500-2 (Version None)
Quarter: 2009Q4

REPORT INFORMATION
  Report Type: 
  Country: None (occurrence: None)
  Receive Date: 20091125
  Receipt Date: 20091112
  Transmission Date: 20100525
  Serious: Yes (Hospitalization, Other)
  Sender: FDA-Public Use
  Company Number: PHEH2007US14568

PATIENT
  Sex: Female
  Weight: 56.689 kg

DRUGS (54)
  1. ZOMETA [Suspect]
     Indication: MULTIPLE MYELOMA
  2. FOSAMAX [Suspect]
  3. WELLBUTRIN [Concomitant]
     Dosage: 200 MG, BID
  4. PAXIL [Concomitant]
  5. ZOCOR [Concomitant]
     Dosage: 80 MG, QD
     Dates: start: 20030101
  6. PROPULSID [Concomitant]
     Dosage: 40 MG, BID
  7. CELEXA [Concomitant]
  8. ESTRATEST [Concomitant]
     Dosage: 1.25/2.5 QAM
  9. COREG [Concomitant]
     Dosage: 6.25 MG, QAM
  10. COLACE [Concomitant]
     Dosage: UNK
  11. NEXIUM [Concomitant]
     Dosage: 40 MG, QAM
  12. MOBIC [Concomitant]
     Dosage: 15 MG, QD
  13. SKELAXIN [Concomitant]
     Dosage: 800 MG, QID
  14. PROMETRIUM [Concomitant]
     Dosage: 100 MG, UNK
  15. EFFEXOR [Concomitant]
     Dosage: 225 MG, QHS
  16. TRAMADOL HCL [Concomitant]
     Dosage: 100 MG, QAM+QPM
  17. LUNESTA [Concomitant]
     Dosage: 3 MG, BEDTIME
  18. ATIVAN [Concomitant]
     Dosage: 1 MG, PRN Q12H
  19. LAXATIVES [Concomitant]
     Dosage: UNK
  20. AMITIZA [Concomitant]
     Dosage: 24 UG, BID
  21. LIPITOR [Concomitant]
     Dosage: UNK
     Dates: start: 20030101
  22. HYTRIN [Concomitant]
     Dosage: 5 MG, UNK
  23. CHEMOTHERAPEUTICS NOS [Concomitant]
  24. HYDROCHLOROTHIAZIDE [Concomitant]
     Indication: HYPERTENSION
  25. PROVIGIL [Concomitant]
     Indication: FATIGUE
  26. TOPRAL [Concomitant]
     Indication: HYPERTENSION
  27. PREVACID [Concomitant]
     Indication: GASTROOESOPHAGEAL REFLUX DISEASE
  28. TERAZOSIN HCL [Concomitant]
  29. TRIAMCINOLONE [Concomitant]
  30. CYTOMEL [Concomitant]
  31. TOPROL-XL [Concomitant]
  32. METRONIDAZOLE [Concomitant]
  33. TRAZODONE HCL [Concomitant]
  34. WELLBUTRIN SR [Concomitant]
  35. ACTONEL [Concomitant]
  36. PAROXETINE HCL [Concomitant]
  37. FLONASE [Concomitant]
  38. ASTELIN [Concomitant]
  39. QVAR 40 [Concomitant]
     Dosage: 40 MCG, 2 INHALATIONS DAILY
  40. PERCOCET [Concomitant]
     Dosage: UNK
  41. OMEPRAZOLE [Concomitant]
     Dosage: 20 MG / DAILY
  42. ZANAFLEX [Concomitant]
     Dosage: 4 MG, 1/2 TABLET
  43. REVLIMID [Concomitant]
     Dosage: UNK
  44. LIPITOR [Concomitant]
     Dosage: UNK
  45. ULTRAM [Concomitant]
     Dosage: 300 MG / DAILY
     Route: 048
  46. BENICAR [Concomitant]
     Dosage: UNK
  47. CITALOPRAM HYDROBROMIDE [Concomitant]
     Dosage: 60 MG / DAILY
     Route: 048
  48. ARANESP [Concomitant]
     Dosage: UNK
  49. DEXAMETHASONE TAB [Concomitant]
     Dosage: UNK
     Dates: start: 20070416
  50. VELCADE [Concomitant]
     Dosage: UNK
  51. DOXILEK [Concomitant]
     Dosage: UNK
  52. NEUPOGEN [Concomitant]
     Dosage: 960 MCG / DAILY
     Dates: start: 20071201
  53. MELPHALAN [Concomitant]
  54. DIGITALIS TAB [Concomitant]
     Dosage: UNK
     Dates: start: 20080201

REACTIONS (99)
  - ABDOMINAL PAIN [None]
  - ABDOMINAL PAIN UPPER [None]
  - ACTINOMYCOSIS [None]
  - ANAEMIA [None]
  - ANGIOPATHY [None]
  - ANHEDONIA [None]
  - ANXIETY [None]
  - ARTHRITIS [None]
  - AZOTAEMIA [None]
  - BACK PAIN [None]
  - BACTERAEMIA [None]
  - BLOOD CHOLESTEROL INCREASED [None]
  - BONE DENSITY DECREASED [None]
  - BONE DISORDER [None]
  - BONE EROSION [None]
  - BONE FRAGMENTATION [None]
  - CARDIAC FAILURE CONGESTIVE [None]
  - CARDIOMYOPATHY [None]
  - CONGESTIVE CARDIOMYOPATHY [None]
  - CONSTIPATION [None]
  - COUGH [None]
  - DEFORMITY [None]
  - DENTAL FISTULA [None]
  - DERMATITIS [None]
  - DIARRHOEA [None]
  - DIURETIC THERAPY [None]
  - DIVERTICULUM [None]
  - DYSPNOEA [None]
  - ECZEMA [None]
  - ECZEMA ASTEATOTIC [None]
  - EMOTIONAL DISTRESS [None]
  - ENDODONTIC PROCEDURE [None]
  - EXCESSIVE GRANULATION TISSUE [None]
  - FALL [None]
  - FATIGUE [None]
  - FIBROUS HISTIOCYTOMA [None]
  - FLUID OVERLOAD [None]
  - GASTROOESOPHAGEAL REFLUX DISEASE [None]
  - GINGIVAL GRAFT [None]
  - GINGIVAL RECESSION [None]
  - HALLUCINATION, AUDITORY [None]
  - HYPERKERATOSIS [None]
  - HYPERTENSION [None]
  - HYPOPHAGIA [None]
  - HYPOVOLAEMIA [None]
  - ICHTHYOSIS [None]
  - IMPAIRED HEALING [None]
  - INFLAMMATION [None]
  - JAW FRACTURE [None]
  - JAW OPERATION [None]
  - JOINT EFFUSION [None]
  - LOOSE TOOTH [None]
  - MALNUTRITION [None]
  - MEMORY IMPAIRMENT [None]
  - MITRAL VALVE PROLAPSE [None]
  - MUCOSAL INFLAMMATION [None]
  - MULTIPLE MYELOMA [None]
  - MUSCULAR WEAKNESS [None]
  - MUSCULOSKELETAL DISORDER [None]
  - NAUSEA [None]
  - NECK INJURY [None]
  - NECK PAIN [None]
  - NIGHT SWEATS [None]
  - OEDEMA PERIPHERAL [None]
  - OESOPHAGEAL MUCOSAL HYPERPLASIA [None]
  - OOPHORECTOMY [None]
  - ORAL CAVITY FISTULA [None]
  - ORAL FIBROMA [None]
  - ORAL MUCOSA ATROPHY [None]
  - OROPHARYNGEAL PAIN [None]
  - ORTHODONTIC APPLIANCE USER [None]
  - OSTEONECROSIS [None]
  - PAIN [None]
  - PAIN IN JAW [None]
  - PARAESTHESIA ORAL [None]
  - PERIODONTAL DISEASE [None]
  - PLASMACYTOSIS [None]
  - POLYURIA [None]
  - POSTMENOPAUSAL HAEMORRHAGE [None]
  - PRURITUS [None]
  - PURULENT DISCHARGE [None]
  - PYREXIA [None]
  - RASH [None]
  - RENAL FAILURE [None]
  - RETCHING [None]
  - SKIN DISORDER [None]
  - SKIN NEOPLASM EXCISION [None]
  - SLEEP APNOEA SYNDROME [None]
  - SOMNOLENCE [None]
  - STEM CELL TRANSPLANT [None]
  - SWELLING [None]
  - TONGUE COATED [None]
  - TOOTH DISORDER [None]
  - TOOTH FRACTURE [None]
  - TOOTH INFECTION [None]
  - TOOTH LOSS [None]
  - UTERINE LEIOMYOMA [None]
  - VAGINAL DISCHARGE [None]
  - WOUND DRAINAGE [None]
